FAERS Safety Report 4418097-1 (Version None)
Quarter: 2004Q3

REPORT INFORMATION
  Report Type: 
  Country: None (occurrence: None)
  Receive Date: 20040803
  Receipt Date: 20040720
  Transmission Date: 20050211
  Serious: Yes (Hospitalization)
  Sender: FDA-Public Use
  Company Number: US-JNJFOC-20040705775

PATIENT
  Age: 31 Year
  Sex: Female
  Weight: 52.6173 kg

DRUGS (5)
  1. INFLIXIMAB LYOPHILIZED POWDER (INFLIXIMAB, RECOMBINANT) [Suspect]
     Indication: CROHN'S DISEASE
     Dosage: 5 MG/KG INTRAVENOUS
     Route: 042
     Dates: start: 20020906
  2. NARCOTIC ANALGESICS (ANALGESICS) [Suspect]
     Indication: CROHN'S DISEASE
  3. FLUCONAZOLE [Suspect]
     Indication: CROHN'S DISEASE
  4. MESALAMINE [Suspect]
     Indication: CROHN'S DISEASE
  5. PROTONIX [Suspect]
     Indication: CROHN'S DISEASE

REACTIONS (2)
  - GASTRIC ULCER [None]
  - OESOPHAGITIS [None]
